FAERS Safety Report 18206985 (Version 1)
Quarter: 2020Q3

REPORT INFORMATION
  Report Type: Spontaneous
  Country: CN (occurrence: CN)
  Receive Date: 20200828
  Receipt Date: 20200828
  Transmission Date: 20201103
  Serious: Yes (Hospitalization)
  Sender: FDA-Public Use
  Company Number: CN-PFIZER INC-2020333866

PATIENT
  Age: 24 Year
  Sex: Female
  Weight: 70 kg

DRUGS (1)
  1. HEMABATE [Suspect]
     Active Substance: CARBOPROST TROMETHAMINE
     Indication: UTERINE CONTRACTIONS ABNORMAL
     Dosage: 250 UG, 1X/DAY
     Route: 030
     Dates: start: 20200824, end: 20200824

REACTIONS (2)
  - Abdominal pain [Recovering/Resolving]
  - Abdominal pain upper [Recovering/Resolving]

NARRATIVE: CASE EVENT DATE: 20200824
